FAERS Safety Report 9699386 (Version 1)
Quarter: 2013Q4

REPORT INFORMATION
  Report Type: Spontaneous
  Country: US (occurrence: US)
  Receive Date: 20131120
  Receipt Date: 20131120
  Transmission Date: 20140711
  Serious: Yes (Disabling, Other)
  Sender: FDA-Public Use
  Company Number: US-UCBSA-103189

PATIENT
  Sex: Male

DRUGS (1)
  1. VIMPAT [Suspect]
     Indication: CONVULSION
     Dosage: DOSE: 100 MG 2/DAILY

REACTIONS (7)
  - Deafness [Not Recovered/Not Resolved]
  - Head injury [Unknown]
  - Amnesia [Not Recovered/Not Resolved]
  - Convulsion [Unknown]
  - Ageusia [Not Recovered/Not Resolved]
  - Anosmia [Not Recovered/Not Resolved]
  - Balance disorder [Not Recovered/Not Resolved]
